FAERS Safety Report 25006413 (Version 2)
Quarter: 2025Q2

REPORT INFORMATION
  Report Type: Report from Study
  Country: US (occurrence: US)
  Receive Date: 20250224
  Receipt Date: 20250407
  Transmission Date: 20250717
  Serious: Yes (Hospitalization, Other)
  Sender: ABBVIE
  Company Number: US-ABBVIE-6147968

PATIENT
  Age: 66 Year
  Sex: Female

DRUGS (19)
  1. VENCLEXTA [Suspect]
     Active Substance: VENETOCLAX
     Indication: Acute myeloid leukaemia
     Route: 048
     Dates: start: 2024
  2. VENCLEXTA [Suspect]
     Active Substance: VENETOCLAX
     Indication: Acute myeloid leukaemia
     Route: 048
  3. VENCLEXTA [Suspect]
     Active Substance: VENETOCLAX
     Indication: Acute myeloid leukaemia
     Route: 048
  4. VENCLEXTA [Suspect]
     Active Substance: VENETOCLAX
     Indication: Acute myeloid leukaemia
     Dosage: AS DIRECTED. TAKE ON DAYS 1-14 OF A 28-DAY CYCLE. TAKE WITH FOOD
     Route: 048
  5. POSACONAZOLE [Concomitant]
     Active Substance: POSACONAZOLE
     Indication: Product used for unknown indication
  6. APIXABAN [Concomitant]
     Active Substance: APIXABAN
     Indication: Product used for unknown indication
     Route: 048
  7. VALTREX [Concomitant]
     Active Substance: VALACYCLOVIR HYDROCHLORIDE
     Indication: Product used for unknown indication
     Route: 048
  8. PREDNISONE [Concomitant]
     Active Substance: PREDNISONE
     Indication: Product used for unknown indication
     Route: 048
  9. FLUTICASONE [Concomitant]
     Active Substance: FLUTICASONE
     Indication: Product used for unknown indication
     Route: 045
  10. PANTOPRAZOLE [Concomitant]
     Active Substance: PANTOPRAZOLE
     Indication: Product used for unknown indication
     Route: 048
  11. CYCLOBENZAPRINE [Concomitant]
     Active Substance: CYCLOBENZAPRINE
     Indication: Product used for unknown indication
     Route: 048
  12. COPPER GLUCONATE [Concomitant]
     Active Substance: COPPER GLUCONATE
     Indication: Product used for unknown indication
     Route: 048
  13. ONDANSETRON [Concomitant]
     Active Substance: ONDANSETRON
     Indication: Product used for unknown indication
     Route: 048
  14. ESCITALOPRAM [Concomitant]
     Active Substance: ESCITALOPRAM OXALATE
     Indication: Product used for unknown indication
     Route: 048
  15. SULFAMETHOXAZOLE\TRIMETHOPRIM [Concomitant]
     Active Substance: SULFAMETHOXAZOLE\TRIMETHOPRIM
     Indication: Product used for unknown indication
     Route: 048
  16. Albuterol  HFA [Concomitant]
     Indication: Product used for unknown indication
     Route: 055
  17. METOPROLOL [Concomitant]
     Active Substance: METOPROLOL
     Indication: Product used for unknown indication
  18. VIDAZA [Suspect]
     Active Substance: AZACITIDINE
     Indication: Product used for unknown indication
     Route: 065
  19. ALLOPURINOL [Concomitant]
     Active Substance: ALLOPURINOL
     Indication: Product used for unknown indication

REACTIONS (64)
  - Thrombosis [Unknown]
  - Pulmonary thrombosis [Recovered/Resolved]
  - Nausea [Unknown]
  - Night sweats [Unknown]
  - Diarrhoea [Unknown]
  - Musculoskeletal pain [Unknown]
  - Fatigue [Unknown]
  - Febrile neutropenia [Unknown]
  - Pneumonia [Unknown]
  - Vomiting [Unknown]
  - Neutropenia [Unknown]
  - Abdominal pain [Unknown]
  - Haemorrhage [Unknown]
  - Dizziness [Unknown]
  - Platelet count decreased [Unknown]
  - Sepsis [Unknown]
  - Mucosal inflammation [Unknown]
  - Pyrexia [Unknown]
  - Liver disorder [Unknown]
  - Blood glucose increased [Unknown]
  - Blood phosphorus decreased [Unknown]
  - Chest pain [Unknown]
  - Malaise [Unknown]
  - Leukopenia [Unknown]
  - Agranulocytosis [Unknown]
  - Bone marrow failure [Unknown]
  - Infection [Unknown]
  - Hepatotoxicity [Unknown]
  - Atrial fibrillation [Unknown]
  - Cardiac failure congestive [Unknown]
  - Pericardial effusion [Unknown]
  - Pneumonitis [Unknown]
  - Interstitial lung disease [Unknown]
  - Respiratory distress [Unknown]
  - Seizure [Unknown]
  - Dyspnoea exertional [Unknown]
  - Tumour lysis syndrome [Unknown]
  - Renal failure [Unknown]
  - Haemolytic anaemia [Unknown]
  - Bone pain [Unknown]
  - Constipation [Unknown]
  - Dyspnoea [Recovering/Resolving]
  - Petechiae [Unknown]
  - Ecchymosis [Unknown]
  - Arthralgia [Unknown]
  - Headache [Unknown]
  - Rash [Unknown]
  - Insomnia [Unknown]
  - Myalgia [Unknown]
  - Pruritus [Unknown]
  - Haematoma [Unknown]
  - Stomatitis [Unknown]
  - Hypertension [Unknown]
  - Hypotension [Unknown]
  - Xeroderma [Unknown]
  - Dyspepsia [Unknown]
  - Hypokalaemia [Unknown]
  - Haematuria [Unknown]
  - Rhinitis [Unknown]
  - Chronic kidney disease [Unknown]
  - Copper deficiency [Unknown]
  - Neoplasm progression [Unknown]
  - Pulmonary embolism [Unknown]
  - Deep vein thrombosis [Unknown]

NARRATIVE: CASE EVENT DATE: 20250201
